FAERS Safety Report 13419331 (Version 2)
Quarter: 2017Q2

REPORT INFORMATION
  Report Type: Spontaneous
  Country: US (occurrence: US)
  Receive Date: 20170407
  Receipt Date: 20170512
  Transmission Date: 20170830
  Serious: Yes (Other)
  Sender: FDA-Public Use
  Company Number: US-JNJFOC-20150613962

PATIENT
  Sex: Male

DRUGS (14)
  1. RISPERDAL [Suspect]
     Active Substance: RISPERIDONE
     Indication: PANIC ATTACK
     Dosage: 1MG AND 3 MG
     Route: 048
     Dates: start: 2011
  2. RISPERDAL [Suspect]
     Active Substance: RISPERIDONE
     Indication: DEPRESSION
     Route: 048
     Dates: start: 1983
  3. RISPERDAL [Suspect]
     Active Substance: RISPERIDONE
     Indication: DEPRESSION
     Route: 048
     Dates: start: 201105, end: 2011
  4. RISPERDAL [Suspect]
     Active Substance: RISPERIDONE
     Indication: BIPOLAR DISORDER
     Route: 048
     Dates: start: 201105, end: 2011
  5. RISPERDAL [Suspect]
     Active Substance: RISPERIDONE
     Indication: BIPOLAR DISORDER
     Route: 048
     Dates: start: 1983
  6. INVEGA [Suspect]
     Active Substance: PALIPERIDONE
     Indication: PRODUCT USED FOR UNKNOWN INDICATION
     Route: 048
  7. RISPERDAL [Suspect]
     Active Substance: RISPERIDONE
     Indication: PANIC ATTACK
     Dosage: 1 MG AND 3 MG
     Route: 048
     Dates: start: 1997, end: 2000
  8. RISPERDAL [Suspect]
     Active Substance: RISPERIDONE
     Indication: BIPOLAR DISORDER
     Dosage: 1 MG AND 3 MG
     Route: 048
     Dates: start: 1997, end: 2000
  9. RISPERDAL [Suspect]
     Active Substance: RISPERIDONE
     Indication: DEPRESSION
     Dosage: 1MG AND 3 MG
     Route: 048
     Dates: start: 2011
  10. RISPERDAL [Suspect]
     Active Substance: RISPERIDONE
     Indication: BIPOLAR DISORDER
     Dosage: 1MG AND 3 MG
     Route: 048
     Dates: start: 2011
  11. RISPERIDONE. [Suspect]
     Active Substance: RISPERIDONE
     Indication: PRODUCT USED FOR UNKNOWN INDICATION
     Route: 048
  12. RISPERDAL [Suspect]
     Active Substance: RISPERIDONE
     Indication: PANIC ATTACK
     Route: 048
     Dates: start: 1983
  13. RISPERDAL [Suspect]
     Active Substance: RISPERIDONE
     Indication: DEPRESSION
     Dosage: 1 MG AND 3 MG
     Route: 048
     Dates: start: 1997, end: 2000
  14. RISPERDAL [Suspect]
     Active Substance: RISPERIDONE
     Indication: PANIC ATTACK
     Route: 048
     Dates: start: 201105, end: 2011

REACTIONS (6)
  - Hyperprolactinaemia [Unknown]
  - Extrapyramidal disorder [Unknown]
  - Mood altered [Unknown]
  - Galactorrhoea [Unknown]
  - Gynaecomastia [Recovered/Resolved]
  - Abnormal weight gain [Unknown]

NARRATIVE: CASE EVENT DATE: 2000
